FAERS Safety Report 17244081 (Version 2)
Quarter: 2020Q1

REPORT INFORMATION
  Report Type: Spontaneous
  Country: US (occurrence: US)
  Receive Date: 20200107
  Receipt Date: 20200131
  Transmission Date: 20200409
  Serious: Yes (Hospitalization)
  Sender: FDA-Public Use
  Company Number: US-TEVA-2020-US-1163163

PATIENT
  Age: 38 Year
  Sex: Female
  Weight: 119.1 kg

DRUGS (3)
  1. MEROPENEM. [Suspect]
     Active Substance: MEROPENEM
     Indication: TOXICITY TO VARIOUS AGENTS
     Dosage: ON TWO OCCASIONS (TOTAL DOSE 2G)
     Route: 042
  2. DIVALPROEX SODIUM. [Suspect]
     Active Substance: DIVALPROEX SODIUM
     Indication: SUICIDE ATTEMPT
     Dosage: 20 EXTENDED-RELEASE TABLETS
     Route: 048
  3. QUETIAPINE. [Suspect]
     Active Substance: QUETIAPINE
     Indication: SUICIDE ATTEMPT
     Dosage: 20 TABLETS
     Route: 048

REACTIONS (9)
  - Respiratory rate increased [Recovering/Resolving]
  - Hyperhidrosis [Recovering/Resolving]
  - Anxiety [Recovering/Resolving]
  - Intentional overdose [Unknown]
  - Off label use [Unknown]
  - Mental impairment [Recovering/Resolving]
  - Suicide attempt [Unknown]
  - Toxicity to various agents [Recovering/Resolving]
  - Heart rate increased [Recovering/Resolving]
